FAERS Safety Report 5299514-4 (Version None)
Quarter: 2007Q2

REPORT INFORMATION
  Report Type: 
  Country: None (occurrence: None)
  Receive Date: 20070417
  Receipt Date: 20070412
  Transmission Date: 20071010
  Serious: Yes (Death, Life-Threatening, Other)
  Sender: FDA-Public Use
  Company Number: HQWYE048326DEC06

PATIENT
  Sex: Female
  Weight: 57 kg

DRUGS (33)
  1. MYLOTARG [Suspect]
     Indication: ACUTE MYELOID LEUKAEMIA
     Route: 041
     Dates: start: 20061024, end: 20061024
  2. VFEND [Concomitant]
     Dosage: 400 MG/DAY
     Route: 041
     Dates: start: 20061013, end: 20061026
  3. VFEND [Concomitant]
     Dosage: 400 MG/DAY
     Route: 041
     Dates: start: 20061031, end: 20061106
  4. HANP [Concomitant]
     Dosage: NOT PROVIDED
     Route: 041
     Dates: start: 20061020, end: 20061026
  5. HANP [Concomitant]
     Dosage: NOT PROVIDED
     Route: 041
     Dates: start: 20061116, end: 20061117
  6. LASIX [Concomitant]
     Dosage: 80 MG/DAY
     Route: 042
     Dates: start: 20061028, end: 20061117
  7. DIAMOX [Concomitant]
     Dosage: 500 MG/DAY
     Route: 042
     Dates: start: 20061031, end: 20061105
  8. NEU-UP [Concomitant]
     Indication: PROPHYLAXIS
     Dosage: 100 UG/DAY
     Route: 042
     Dates: start: 20061103, end: 20061117
  9. FOY [Concomitant]
     Indication: PROPHYLAXIS
     Dosage: 2000MG/DAY
     Route: 041
     Dates: start: 20061031, end: 20061117
  10. FAMOTIDINE [Concomitant]
     Indication: PROPHYLAXIS
     Dosage: 40 MG/DAY
     Route: 048
     Dates: start: 20060630, end: 20061026
  11. FAMOTIDINE [Concomitant]
     Dosage: 40 MG/DAY
     Route: 042
     Dates: start: 20061027, end: 20061106
  12. DOBUTAMINE HCL [Concomitant]
     Dosage: NOT PROVIDED
     Route: 041
     Dates: start: 20061031, end: 20061117
  13. OMEPRAL [Concomitant]
     Indication: PROPHYLAXIS
     Dosage: 20 MG/DAY
     Route: 041
     Dates: start: 20061114, end: 20061120
  14. SOLDACTONE [Concomitant]
     Dosage: 100 MG/DAY
     Route: 042
     Dates: start: 20061101, end: 20061107
  15. SOLDACTONE [Concomitant]
     Dosage: 100 MG/DAY
     Route: 042
     Dates: start: 20061116, end: 20061117
  16. DIGOSIN [Concomitant]
     Dosage: 0.25 MG/DAY
     Route: 041
     Dates: start: 20061115, end: 20061117
  17. DIPRIVAN [Concomitant]
     Dosage: 100 MG/DAY
     Route: 042
     Dates: start: 20061116, end: 20061117
  18. ELASPOL [Concomitant]
     Indication: PROPHYLAXIS
     Dosage: 250 MG/DAY
     Route: 042
     Dates: start: 20061031, end: 20061103
  19. CATABON [Concomitant]
     Indication: SEPTIC SHOCK
     Dosage: NOT PROVIDED
     Route: 042
     Dates: start: 20061026, end: 20061101
  20. CATABON [Concomitant]
     Dosage: NOT PROVIDED
     Route: 042
     Dates: start: 20061116, end: 20061117
  21. SELBEX [Concomitant]
     Indication: PROPHYLAXIS
     Dosage: 1.5 G/DAY
     Route: 048
     Dates: start: 20060630, end: 20061115
  22. MAGNESIUM OXIDE [Concomitant]
     Indication: PROPHYLAXIS
     Dosage: 990 MG/DAY
     Route: 048
     Dates: start: 20060630, end: 20061115
  23. BAKTAR [Concomitant]
     Indication: PROPHYLAXIS
     Dosage: 1 G/DAY
     Route: 048
     Dates: start: 20060630, end: 20061115
  24. FLUCONAZOLE [Concomitant]
     Indication: PROPHYLAXIS
     Dosage: 100 MG/DAY
     Route: 048
     Dates: start: 20060630, end: 20061115
  25. NU-LOTAN [Concomitant]
     Dosage: 50 MG/DAY
     Route: 048
     Dates: end: 20061020
  26. AMLODIN [Concomitant]
     Dosage: 2.5 MG/DAY
     Route: 048
     Dates: end: 20061020
  27. LUVOX [Concomitant]
     Dosage: 50 MG/DAY
     Route: 048
     Dates: end: 20061110
  28. MEVALOTIN [Concomitant]
     Dosage: 5 MG/DAY
     Route: 048
     Dates: end: 20061026
  29. ETIZOLAM [Concomitant]
     Indication: PROPHYLAXIS
     Dosage: 0.5 MG/DAY
     Route: 048
     Dates: end: 20061026
  30. ARTIST [Concomitant]
     Dosage: 2.5 MG/DAY
     Route: 048
     Dates: start: 20061024, end: 20061117
  31. ZOLPIDEM TARTRATE [Concomitant]
     Indication: PROPHYLAXIS
     Dosage: 5 MG/DAY
     Route: 048
     Dates: start: 20060101, end: 20060101
  32. CIPROFLOXACIN [Concomitant]
     Dosage: 600 MG/DAY
     Route: 041
     Dates: start: 20061020, end: 20061026
  33. CIPROFLOXACIN [Concomitant]
     Dosage: 600 MG/DAY
     Route: 041
     Dates: start: 20061114, end: 20061117

REACTIONS (4)
  - CARDIAC FAILURE [None]
  - CONDITION AGGRAVATED [None]
  - NEUTROPHIL COUNT DECREASED [None]
  - SEPSIS [None]
